FAERS Safety Report 11239152 (Version 1)
Quarter: 2015Q3

REPORT INFORMATION
  Report Type: Spontaneous
  Country: US (occurrence: None)
  Receive Date: 20150701
  Receipt Date: 20150701
  Transmission Date: 20151125
  Serious: Yes (Hospitalization)
  Sender: FDA-Public Use
  Company Number: US-FAC-000054

PATIENT
  Age: 93 Year
  Sex: Female

DRUGS (1)
  1. CEFTRIAXONE. [Suspect]
     Active Substance: CEFTRIAXONE
     Indication: OSTEOMYELITIS BACTERIAL

REACTIONS (6)
  - Somnolence [None]
  - Asthenia [None]
  - Rash erythematous [None]
  - Dermatitis [None]
  - Acute generalised exanthematous pustulosis [None]
  - Rash pustular [None]
